FAERS Safety Report 9402909 (Version 2)
Quarter: 2013Q4

REPORT INFORMATION
  Report Type: Spontaneous
  Country: IT (occurrence: IT)
  Receive Date: 20130716
  Receipt Date: 20131130
  Transmission Date: 20140711
  Serious: Yes (Other)
  Sender: FDA-Public Use
  Company Number: IT-TEVA-417343ISR

PATIENT
  Age: 71 Year
  Sex: Female
  Weight: 60 kg

DRUGS (8)
  1. FLUOROURACILE TEVA [Suspect]
     Indication: COLON CANCER
     Route: 040
     Dates: start: 20130503, end: 20130528
  2. FLUOROURACILE TEVA [Suspect]
     Dosage: 972 MG CYCLICAL
     Route: 042
     Dates: start: 20130503, end: 20130528
  3. AVASTIN [Suspect]
     Indication: COLON CANCER
     Dosage: CONCENTRATE FOR SOLUTION FOR INTRAVENOUS INFUSION
     Route: 042
     Dates: start: 20130503, end: 20130528
  4. IRINOTECAN HOSPIRA [Suspect]
     Indication: COLON CANCER
     Dosage: CONCENTRATE FOR SOLUTION FOR INTRAVENOUS INFUSION
     Route: 042
     Dates: start: 20130503, end: 20130528
  5. SOLDESAM [Concomitant]
     Dosage: 8 MILLIGRAM DAILY;
     Route: 042
  6. ONDANSETRONE HIKMA [Concomitant]
     Dosage: 8 MILLIGRAM DAILY;
     Route: 042
  7. RANIDIL [Concomitant]
     Dosage: 50 MILLIGRAM DAILY;
     Route: 042
  8. LEVOFOLENE [Concomitant]
     Dosage: 162 MILLIGRAM DAILY;
     Route: 042

REACTIONS (7)
  - Diarrhoea [Unknown]
  - Nausea [Unknown]
  - Vomiting [Unknown]
  - Stomatitis [Unknown]
  - Fatigue [Unknown]
  - Pain in extremity [Unknown]
  - Headache [Unknown]
